FAERS Safety Report 7255823-0 (Version None)
Quarter: 2011Q1

REPORT INFORMATION
  Report Type: 
  Country: None (occurrence: None)
  Receive Date: 20110129
  Receipt Date: 20100811
  Transmission Date: 20110831
  Serious: No
  Sender: FDA-Public Use
  Company Number: PR-ABBOTT-10P-131-0663629-00

PATIENT
  Sex: Female
  Weight: 74.91 kg

DRUGS (4)
  1. ULTRAM [Concomitant]
     Indication: ARTHRALGIA
  2. METHOTREXATE [Concomitant]
     Indication: RHEUMATOID ARTHRITIS
     Route: 048
  3. HUMIRA [Suspect]
     Indication: PRODUCT USED FOR UNKNOWN INDICATION
     Route: 058
     Dates: start: 20100809
  4. ETODOLAC [Concomitant]
     Indication: ARTHRALGIA
     Route: 048

REACTIONS (2)
  - CHEST PAIN [None]
  - FATIGUE [None]
